FAERS Safety Report 16782749 (Version 13)
Quarter: 2020Q2

REPORT INFORMATION
  Report Type: Spontaneous
  Country: US (occurrence: US)
  Receive Date: 20190906
  Receipt Date: 20200603
  Transmission Date: 20200713
  Serious: Yes (Hospitalization)
  Sender: FDA-Public Use
  Company Number: US-ACTELION-A-NJ2019-195026

PATIENT
  Age: 64 Year
  Sex: Female
  Weight: 137.87 kg

DRUGS (4)
  1. OPSUMIT [Suspect]
     Active Substance: MACITENTAN
     Indication: PULMONARY ARTERIAL HYPERTENSION
     Dosage: 10 MG, QD
     Route: 048
     Dates: start: 20190821
  2. CYMBALTA [Suspect]
     Active Substance: DULOXETINE HYDROCHLORIDE
     Indication: PRODUCT USED FOR UNKNOWN INDICATION
     Route: 065
  3. OXYGEN. [Concomitant]
     Active Substance: OXYGEN
  4. TYVASO [Suspect]
     Active Substance: TREPROSTINIL
     Indication: PULMONARY ARTERIAL HYPERTENSION
     Dosage: UNK, 4 TIMES A DAY
     Route: 065
     Dates: start: 201908

REACTIONS (33)
  - Ejection fraction decreased [Recovered/Resolved]
  - Paraesthesia [Unknown]
  - Pulmonary congestion [Unknown]
  - Dizziness [Unknown]
  - Epistaxis [Not Recovered/Not Resolved]
  - Blood potassium decreased [Unknown]
  - Fluid retention [Not Recovered/Not Resolved]
  - Nasal dryness [Not Recovered/Not Resolved]
  - Urticaria [Recovered/Resolved]
  - Cardiac failure acute [Recovered/Resolved]
  - Oedema [Recovered/Resolved]
  - Diarrhoea [Not Recovered/Not Resolved]
  - Unevaluable event [Unknown]
  - Fluid overload [Recovered/Resolved]
  - Malaise [Recovered/Resolved]
  - Pruritus [Recovered/Resolved]
  - Hypersensitivity [Unknown]
  - Fatigue [Unknown]
  - Blister [Not Recovered/Not Resolved]
  - Cough [Unknown]
  - Skin odour abnormal [Not Recovered/Not Resolved]
  - Gait disturbance [Not Recovered/Not Resolved]
  - Localised infection [Unknown]
  - Nasal congestion [Not Recovered/Not Resolved]
  - Lethargy [Unknown]
  - Blood glucose decreased [Not Recovered/Not Resolved]
  - Peripheral swelling [Unknown]
  - Feeling abnormal [Recovering/Resolving]
  - Condition aggravated [Not Recovered/Not Resolved]
  - Dyspnoea [Unknown]
  - Asthenia [Not Recovered/Not Resolved]
  - Oedema peripheral [Not Recovered/Not Resolved]
  - Dry mouth [Recovered/Resolved]

NARRATIVE: CASE EVENT DATE: 201908
